FAERS Safety Report 5360979-0 (Version None)
Quarter: 2007Q2

REPORT INFORMATION
  Report Type: 
  Country: None (occurrence: None)
  Receive Date: 20070530
  Receipt Date: 20070326
  Transmission Date: 20071010
  Serious: No
  Sender: FDA-Public Use
  Company Number: 2007PV032392

PATIENT
  Age: 64 Year
  Sex: Male
  Weight: 153.7694 kg

DRUGS (5)
  1. BYETTA [Suspect]
     Indication: DIABETES MELLITUS NON-INSULIN-DEPENDENT
     Dosage: 10 MCG BID SC ; 5 MCG BID SC
     Route: 058
     Dates: start: 20061201, end: 20070101
  2. BYETTA [Suspect]
     Indication: DIABETES MELLITUS NON-INSULIN-DEPENDENT
     Dosage: 10 MCG BID SC ; 5 MCG BID SC
     Route: 058
     Dates: start: 20070101
  3. WELCHOL [Suspect]
     Indication: BLOOD CHOLESTEROL
     Dosage: TID
     Dates: end: 20070101
  4. AVANDAMET [Concomitant]
  5. ZESTA [Concomitant]

REACTIONS (4)
  - DECREASED APPETITE [None]
  - GAMMA-GLUTAMYLTRANSFERASE INCREASED [None]
  - STOMACH DISCOMFORT [None]
  - WEIGHT DECREASED [None]
